FAERS Safety Report 6822893-0 (Version None)
Quarter: 2010Q3

REPORT INFORMATION
  Report Type: 
  Country: None (occurrence: None)
  Receive Date: 20100708
  Receipt Date: 20100630
  Transmission Date: 20110219
  Serious: Yes (Death, Other)
  Sender: FDA-Public Use
  Company Number: US-AMGEN-QUU421627

PATIENT
  Sex: Female

DRUGS (1)
  1. NPLATE [Suspect]
     Indication: PRODUCT USED FOR UNKNOWN INDICATION
     Dates: start: 20091223, end: 20091223

REACTIONS (2)
  - CEREBROVASCULAR ACCIDENT [None]
  - DEATH [None]
